FAERS Safety Report 9916227 (Version 1)
Quarter: 2014Q1

REPORT INFORMATION
  Report Type: Spontaneous
  Country: NL (occurrence: NL)
  Receive Date: 20140221
  Receipt Date: 20140221
  Transmission Date: 20141002
  Serious: Yes (Other)
  Sender: FDA-Public Use
  Company Number: NL-MYLANLABS-2014S1002947

PATIENT
  Age: 72 Year
  Sex: Male
  Weight: 108 kg

DRUGS (3)
  1. SIMVASTATIN [Suspect]
     Indication: HYPERCHOLESTEROLAEMIA
     Dosage: 1 KEER PER DAG 1 STUK(S)
     Route: 048
     Dates: start: 201308
  2. SIMVASTATIN [Suspect]
     Indication: VASCULITIS
     Dosage: 1 KEER PER DAG 1 STUK(S)
     Route: 048
     Dates: start: 201308
  3. TIMOGEL [Concomitant]
     Indication: PRODUCT USED FOR UNKNOWN INDICATION
     Dosage: 1MG/G TUBE 0,4G
     Route: 047
     Dates: start: 2010

REACTIONS (1)
  - Visual acuity reduced [Unknown]
